FAERS Safety Report 8780806 (Version 1)
Quarter: 2012Q4

REPORT INFORMATION
  Report Type: 
  Country: JP (occurrence: JP)
  Receive Date: 20120913
  Receipt Date: 20120913
  Transmission Date: 20130627
  Serious: Yes (Hospitalization)
  Sender: FDA-Public Use
  Company Number: JP-ELI_LILLY_AND_COMPANY-JP201209001012

PATIENT
  Age: 83 Year
  Sex: Female

DRUGS (3)
  1. FORTEO [Suspect]
     Dosage: UNK
     Route: 058
     Dates: start: 201106
  2. FORTEO [Suspect]
     Route: 058
  3. WARFARIN POTASSIUM [Concomitant]
     Route: 048

REACTIONS (6)
  - Abdominal distension [Unknown]
  - Knee arthroplasty [Recovered/Resolved]
  - Oedema peripheral [Unknown]
  - Feeling hot [Unknown]
  - Feeling hot [Unknown]
  - Cold sweat [Unknown]
